FAERS Safety Report 9841083 (Version 1)
Quarter: 2013Q4

REPORT INFORMATION
  Report Type: Spontaneous
  Country: US (occurrence: None)
  Receive Date: 20131213
  Receipt Date: 20131213
  Transmission Date: 20140711
  Serious: Yes (Hospitalization, Other)
  Sender: FDA-Public Use
  Company Number: 2013AP007670

PATIENT
  Age: 73 Year
  Sex: Male

DRUGS (1)
  1. LISINOPRIL TABLETS [Suspect]
     Indication: HYPERTENSION

REACTIONS (1)
  - Angioedema [None]
